FAERS Safety Report 20027883 (Version 2)
Quarter: 2022Q1

REPORT INFORMATION
  Report Type: Spontaneous
  Country: US (occurrence: US)
  Receive Date: 20211103
  Receipt Date: 20220106
  Transmission Date: 20220423
  Serious: No
  Sender: FDA-Public Use
  Company Number: US-AMGEN-USASP2021171434

PATIENT
  Age: 53 Year
  Sex: Male

DRUGS (11)
  1. OTEZLA [Suspect]
     Active Substance: APREMILAST
     Indication: Psoriasis
     Dosage: 30 MILLIGRAM, BID
     Route: 048
     Dates: start: 20210504
  2. OTEZLA [Suspect]
     Active Substance: APREMILAST
     Dosage: 30 MILLIGRAM, BID
     Route: 048
  3. METFORMIN [Concomitant]
     Active Substance: METFORMIN HYDROCHLORIDE
     Dosage: UNK
  4. ATORVASTATIN [Concomitant]
     Active Substance: ATORVASTATIN
  5. FENOFIBRATE [Concomitant]
     Active Substance: FENOFIBRATE
  6. FLUOCINONIDE [Concomitant]
     Active Substance: FLUOCINONIDE
  7. GLIPIZIDE [Concomitant]
     Active Substance: GLIPIZIDE
  8. INSULIN NOS [Concomitant]
     Active Substance: INSULIN NOS
  9. LANTUS [Concomitant]
     Active Substance: INSULIN GLARGINE
  10. LISINOPRIL [Concomitant]
     Active Substance: LISINOPRIL
  11. SHINGRIX [Concomitant]
     Active Substance: RECOMBINANT VARICELLA ZOSTER VIRUS (VZV) GLYCOPROTEIN E

REACTIONS (3)
  - Influenza [Not Recovered/Not Resolved]
  - Product dose omission issue [Not Recovered/Not Resolved]
  - Illness [Unknown]

NARRATIVE: CASE EVENT DATE: 20210101
